FAERS Safety Report 25838702 (Version 1)
Quarter: 2025Q3

REPORT INFORMATION
  Report Type: Report from Study
  Country: IN (occurrence: IN)
  Receive Date: 20250924
  Receipt Date: 20250924
  Transmission Date: 20251020
  Serious: Yes (Hospitalization)
  Sender: ROCHE
  Company Number: IN-ROCHE-10000394905

PATIENT
  Age: 76 Year
  Sex: Male
  Weight: 72 kg

DRUGS (2)
  1. VABYSMO [Suspect]
     Active Substance: FARICIMAB-SVOA
     Indication: Retinal vein occlusion
     Route: 050
     Dates: start: 20240403
  2. VABYSMO [Suspect]
     Active Substance: FARICIMAB-SVOA
     Indication: Cystoid macular oedema

REACTIONS (1)
  - Malaise [Unknown]
